FAERS Safety Report 4815291-2 (Version None)
Quarter: 2005Q4

REPORT INFORMATION
  Report Type: 
  Country: None (occurrence: None)
  Receive Date: 20051026
  Receipt Date: 20051006
  Transmission Date: 20060501
  Serious: Yes (Hospitalization, Other)
  Sender: FDA-Public Use
  Company Number: USA050599124

PATIENT
  Age: 70 Year
  Sex: Female

DRUGS (11)
  1. FORTEO [Suspect]
     Indication: OSTEOPOROSIS
     Dates: end: 20050521
  2. NEURONTIN [Concomitant]
  3. OXYCONTIN [Concomitant]
  4. PERCOCET [Concomitant]
  5. TRAZODONE HCL [Concomitant]
  6. PREMARIN [Concomitant]
  7. METOPROLOL [Concomitant]
  8. PROCARDIA XL [Concomitant]
  9. ACEON [Concomitant]
  10. MECLIZINE [Concomitant]
  11. PREVACID [Concomitant]

REACTIONS (9)
  - DRUG INTERACTION [None]
  - ELECTROLYTE IMBALANCE [None]
  - HYPERPHOSPHATAEMIA [None]
  - HYPOCALCAEMIA [None]
  - HYPOMAGNESAEMIA [None]
  - HYPOVOLAEMIC SHOCK [None]
  - METABOLIC ACIDOSIS [None]
  - PROCEDURAL COMPLICATION [None]
  - SYNCOPE [None]
